FAERS Safety Report 4279330-2 (Version None)
Quarter: 2004Q1

REPORT INFORMATION
  Report Type: 
  Country: None (occurrence: None)
  Receive Date: 20040122
  Receipt Date: 20040115
  Transmission Date: 20041129
  Serious: Yes (Hospitalization)
  Sender: FDA-Public Use
  Company Number: DE-JNJFOC-20031100797

PATIENT
  Age: 53 Year
  Sex: Female

DRUGS (7)
  1. REMICADE [Suspect]
     Indication: ANKYLOSING SPONDYLITIS
     Dosage: 260 MG, INTRAVENOUS
     Route: 042
     Dates: start: 20030919
  2. BERGIVRAC (INFLUENZA VACCINE) [Suspect]
     Indication: INFLUENZA
     Dates: start: 20031006
  3. OXYCODONE HCL [Concomitant]
  4. NOVALGIN (METAMIZOLE SODIUM) DROPS [Concomitant]
  5. DICLOFENAC SODIUM [Concomitant]
  6. SAROTEN (AMITRIPTYLINE HYDROCHLORIDE) TABLETS [Concomitant]
  7. PANTOZOL (PANTOPRAZOLE SODIUM) [Concomitant]

REACTIONS (8)
  - ARTHRALGIA [None]
  - DRUG INTERACTION [None]
  - FACE OEDEMA [None]
  - HYPERSENSITIVITY [None]
  - MYALGIA [None]
  - OEDEMA PERIPHERAL [None]
  - PYREXIA [None]
  - URTICARIA GENERALISED [None]
